FAERS Safety Report 4406876-6 (Version None)
Quarter: 2004Q3

REPORT INFORMATION
  Report Type: 
  Country: None (occurrence: None)
  Receive Date: 20040715
  Receipt Date: 20040701
  Transmission Date: 20050211
  Serious: Yes (Hospitalization, Other)
  Sender: FDA-Public Use
  Company Number: 2004038603

PATIENT
  Age: 17 Month
  Sex: Female
  Weight: 9.8 kg

DRUGS (4)
  1. ZITHROMAX [Suspect]
     Indication: PNEUMONIA MYCOPLASMAL
     Dosage: 100 MG, ORAL
     Route: 048
     Dates: start: 20040607, end: 20040601
  2. CARBOCISTENE (CARBOCISTENE) [Concomitant]
  3. CYROHEPTADINE HYDROCHLORIDE (CYPROHEPTADINE HYDROCHLORIDE) [Concomitant]
  4. TIPEPIDINE HIBENZATE (TIPEPIDINE HIBENZATE) [Concomitant]

REACTIONS (1)
  - ANAPHYLACTIC SHOCK [None]
